FAERS Safety Report 5196726-5 (Version None)
Quarter: 2007Q1

REPORT INFORMATION
  Report Type: 
  Country: None (occurrence: None)
  Receive Date: 20070103
  Receipt Date: 20061222
  Transmission Date: 20070707
  Serious: Yes (Hospitalization)
  Sender: FDA-Public Use
  Company Number: FR-BAYER-200611034BFR

PATIENT
  Age: 71 Year
  Sex: Male

DRUGS (5)
  1. CIPROFLOXACIN [Suspect]
     Indication: SKIN INFECTION
     Dosage: UNIT DOSE: 200 MG
     Route: 042
     Dates: start: 20060727, end: 20060807
  2. TIENAM [Suspect]
     Indication: SKIN INFECTION
     Dosage: UNIT DOSE: 500 MG
     Route: 042
     Dates: start: 20060728, end: 20060810
  3. CLAVENTIN [Concomitant]
     Indication: SKIN INFECTION
     Dosage: UNIT DOSE: 4 G
     Route: 042
     Dates: start: 20060801, end: 20060804
  4. OFLOCET [Concomitant]
     Indication: UNEVALUABLE EVENT
     Dates: start: 20060526, end: 20060624
  5. OFLOCET [Concomitant]
     Dates: start: 20060626, end: 20060629

REACTIONS (2)
  - OEDEMA PERIPHERAL [None]
  - SKIN EXFOLIATION [None]
